FAERS Safety Report 23748055 (Version 2)
Quarter: 2024Q2

REPORT INFORMATION
  Report Type: Spontaneous
  Country: US (occurrence: US)
  Receive Date: 20240416
  Receipt Date: 20240423
  Transmission Date: 20240716
  Serious: No
  Sender: FDA-Public Use
  Company Number: US-002147023-NVSC2024US080151

PATIENT

DRUGS (1)
  1. VALSARTAN [Suspect]
     Active Substance: VALSARTAN
     Indication: Product used for unknown indication
     Dosage: 80 MG
     Route: 065

REACTIONS (5)
  - COVID-19 [Unknown]
  - Angiopathy [Unknown]
  - Blood pressure systolic decreased [Unknown]
  - Decreased appetite [Unknown]
  - Weight decreased [Unknown]
